FAERS Safety Report 5084182-7 (Version None)
Quarter: 2006Q3

REPORT INFORMATION
  Report Type: 
  Country: None (occurrence: None)
  Receive Date: 20060821
  Receipt Date: 20041025
  Transmission Date: 20061208
  Serious: Yes (Hospitalization)
  Sender: FDA-Public Use
  Company Number: US-BRISTOL-MYERS SQUIBB COMPANY-12743209

PATIENT
  Age: 65 Year
  Sex: Female

DRUGS (13)
  1. TEQUIN [Suspect]
     Indication: URINARY TRACT INFECTION
     Route: 042
     Dates: start: 20041016, end: 20041019
  2. TEQUIN [Suspect]
     Indication: BRONCHITIS
     Route: 042
     Dates: start: 20041016, end: 20041019
  3. TEQUIN [Suspect]
     Indication: BRONCHITIS
     Route: 048
     Dates: start: 20040101, end: 20040101
  4. LASIX [Concomitant]
  5. NORVASC [Concomitant]
  6. PROTONIX [Concomitant]
  7. NEPHROCAPS [Concomitant]
     Dosage: CAPSULES
  8. ZOCOR [Concomitant]
  9. FOLIC ACID [Concomitant]
  10. LOPRESSOR [Concomitant]
  11. XANAX [Concomitant]
  12. VITAMIN B COMPLEX CAP [Concomitant]
  13. AMIODARONE HCL [Concomitant]

REACTIONS (1)
  - HYPERGLYCAEMIA [None]
